FAERS Safety Report 18809496 (Version 2)
Quarter: 2021Q1

REPORT INFORMATION
  Report Type: Spontaneous
  Country: DE (occurrence: DE)
  Receive Date: 20210129
  Receipt Date: 20210317
  Transmission Date: 20210419
  Serious: Yes (Life-Threatening, Other)
  Sender: FDA-Public Use
  Company Number: DE-ASTRAZENECA-2021A011763

PATIENT
  Age: 65 Year
  Sex: Female
  Weight: 68 kg

DRUGS (1)
  1. TAGRISSO [Suspect]
     Active Substance: OSIMERTINIB
     Indication: LUNG ADENOCARCINOMA
     Dosage: UNKNOWN
     Route: 048
     Dates: start: 202004, end: 202007

REACTIONS (8)
  - Metastases to liver [Not Recovered/Not Resolved]
  - Metastases to spleen [Not Recovered/Not Resolved]
  - Metastases to lymph nodes [Unknown]
  - Metastases to central nervous system [Not Recovered/Not Resolved]
  - Brain oedema [Unknown]
  - Metastases to pleura [Not Recovered/Not Resolved]
  - Metastases to lung [Not Recovered/Not Resolved]
  - Neoplasm progression [Unknown]

NARRATIVE: CASE EVENT DATE: 202007
